FAERS Safety Report 18978670 (Version 1)
Quarter: 2021Q1

REPORT INFORMATION
  Report Type: Spontaneous
  Country: US (occurrence: US)
  Receive Date: 20210308
  Receipt Date: 20210308
  Transmission Date: 20210420
  Serious: No
  Sender: FDA-Public Use
  Company Number: US-SA-2021SA075852

PATIENT
  Sex: Male
  Weight: 79.82 kg

DRUGS (8)
  1. NORMAL SALINE [Concomitant]
     Active Substance: SODIUM CHLORIDE
  2. LORATADINE. [Concomitant]
     Active Substance: LORATADINE
  3. EPINEPHRINE. [Concomitant]
     Active Substance: EPINEPHRINE
  4. ENALAPRIL [Concomitant]
     Active Substance: ENALAPRIL
  5. ALDURAZYME [Suspect]
     Active Substance: LARONIDASE
     Indication: MUCOPOLYSACCHARIDOSIS
     Dosage: 46.4 MG, QW
     Route: 041
     Dates: start: 20200220
  6. LMX4 [Concomitant]
     Active Substance: LIDOCAINE
  7. HEPARIN [Concomitant]
     Active Substance: HEPARIN SODIUM
  8. ACETAMINOPHEN. [Concomitant]
     Active Substance: ACETAMINOPHEN

REACTIONS (1)
  - Device malfunction [Unknown]
